FAERS Safety Report 10631913 (Version 2)
Quarter: 2014Q4

REPORT INFORMATION
  Report Type: Spontaneous
  Country: US (occurrence: US)
  Receive Date: 20141205
  Receipt Date: 20141205
  Transmission Date: 20150529
  Serious: No
  Sender: FDA-Public Use
  Company Number: US-BRISTOL-MYERS SQUIBB COMPANY-21535091

PATIENT
  Age: 90 Year
  Sex: Male
  Weight: 82.54 kg

DRUGS (2)
  1. ELIQUIS [Suspect]
     Active Substance: APIXABAN
     Indication: CEREBROVASCULAR ACCIDENT PROPHYLAXIS
     Dosage: 2.5 MG
     Route: 048
  2. CLOPIDOGREL BISULFATE. [Suspect]
     Active Substance: CLOPIDOGREL BISULFATE

REACTIONS (7)
  - Blood urine present [Recovered/Resolved]
  - Pharyngeal haemorrhage [Unknown]
  - Medication error [Unknown]
  - Haemoptysis [Recovered/Resolved]
  - Epistaxis [Unknown]
  - Dysuria [Unknown]
  - Cystitis [Unknown]

NARRATIVE: CASE EVENT DATE: 20141113
